FAERS Safety Report 18105510 (Version 2)
Quarter: 2020Q3

REPORT INFORMATION
  Report Type: Spontaneous
  Country: US (occurrence: US)
  Receive Date: 20200804
  Receipt Date: 20200901
  Transmission Date: 20201103
  Serious: No
  Sender: FDA-Public Use
  Company Number: US-SA-2020SA201263

PATIENT

DRUGS (1)
  1. DUPIXENT [Suspect]
     Active Substance: DUPILUMAB
     Indication: DERMATITIS ATOPIC
     Dosage: 300 MG, QOW
     Route: 058
     Dates: start: 202001

REACTIONS (5)
  - Eczema eyelids [Unknown]
  - Eyelid irritation [Unknown]
  - Eyelids pruritus [Unknown]
  - Swelling of eyelid [Unknown]
  - Eye pruritus [Unknown]

NARRATIVE: CASE EVENT DATE: 2020
